FAERS Safety Report 20075214 (Version 5)
Quarter: 2022Q2

REPORT INFORMATION
  Report Type: Report from Study
  Country: US (occurrence: US)
  Receive Date: 20211116
  Receipt Date: 20220603
  Transmission Date: 20220721
  Serious: Yes (Hospitalization)
  Sender: FDA-Public Use
  Company Number: US-BoehringerIngelheim-2021-BI-137604

PATIENT
  Age: 86 Year
  Sex: Male

DRUGS (1)
  1. OFEV [Suspect]
     Active Substance: NINTEDANIB
     Indication: Idiopathic pulmonary fibrosis
     Route: 048
     Dates: start: 20200611

REACTIONS (9)
  - Nephrolithiasis [Unknown]
  - Hypertension [Unknown]
  - Dizziness [Unknown]
  - Balance disorder [Unknown]
  - Fall [Unknown]
  - Skin abrasion [Unknown]
  - Wound haemorrhage [Unknown]
  - Blood pressure fluctuation [Unknown]
  - Cough [Unknown]

NARRATIVE: CASE EVENT DATE: 20220301
